FAERS Safety Report 10349114 (Version 2)
Quarter: 2014Q3

REPORT INFORMATION
  Report Type: Spontaneous
  Country: JP (occurrence: JP)
  Receive Date: 20140730
  Receipt Date: 20140730
  Transmission Date: 20150326
  Serious: Yes (Hospitalization, Other)
  Sender: FDA-Public Use
  Company Number: JP-009507513-2009SP034659

PATIENT
  Age: 35 Year
  Sex: Female
  Weight: 68 kg

DRUGS (8)
  1. MAGNESIUM SULFATE [Interacting]
     Active Substance: MAGNESIUM SULFATE
     Indication: GESTATIONAL HYPERTENSION
     Dosage: 20 ML, QD
     Route: 042
     Dates: start: 20090316
  2. ULTIVA [Concomitant]
     Active Substance: REMIFENTANIL HYDROCHLORIDE
     Dosage: 6.23 MICROGRAM, QD
     Route: 042
     Dates: start: 20090316, end: 20090316
  3. THIOPENTAL SODIUM. [Concomitant]
     Active Substance: THIOPENTAL SODIUM
     Indication: INDUCTION OF ANAESTHESIA
     Dosage: 272 MG, QD
     Route: 042
  4. ULTIVA [Concomitant]
     Active Substance: REMIFENTANIL HYDROCHLORIDE
     Indication: MAINTENANCE OF ANAESTHESIA
     Dosage: 0.5 MG, UNK
     Route: 042
     Dates: start: 20090316
  5. FENTANYL. [Concomitant]
     Active Substance: FENTANYL
     Indication: INDUCTION OF ANAESTHESIA
     Dosage: 100 MICROGRAM, QD
     Route: 042
     Dates: start: 20090316, end: 20090316
  6. ESLAX INTRAVENOUS 50MG/5.0ML [Suspect]
     Active Substance: ROCURONIUM BROMIDE
     Indication: NEUROMUSCULAR BLOCKING THERAPY
     Dosage: 68 MG, ONCE A DAY
     Route: 042
     Dates: start: 20090316, end: 20090316
  7. SEVOFLURANE. [Concomitant]
     Active Substance: SEVOFLURANE
     Indication: MAINTENANCE OF ANAESTHESIA
     Dosage: INHALATION, DAILY DOSAGE UNKNOWN
     Route: 055
  8. CITOSOL [Concomitant]
     Active Substance: THIAMYLAL SODIUM
     Indication: INDUCTION OF ANAESTHESIA
     Dosage: 250 MG, QD
     Route: 042
     Dates: start: 20090316, end: 20090316

REACTIONS (3)
  - Drug interaction [Recovered/Resolved]
  - Neuromuscular block prolonged [Recovered/Resolved]
  - Overdose [Unknown]

NARRATIVE: CASE EVENT DATE: 20090316
